FAERS Safety Report 7594039-5 (Version None)
Quarter: 2011Q3

REPORT INFORMATION
  Report Type: 
  Country: None (occurrence: None)
  Receive Date: 20110706
  Receipt Date: 20110629
  Transmission Date: 20111222
  Serious: Yes (Other)
  Sender: FDA-Public Use
  Company Number: FR-ROCHE-786867

PATIENT
  Sex: Male

DRUGS (2)
  1. HYDREA [Concomitant]
     Dates: start: 20110321, end: 20110418
  2. PEGINTERFERON ALFA-2A [Suspect]
     Dosage: LAST DOSE PRIOR TO SAE: 13 APR 2011
     Route: 058
     Dates: start: 20110413

REACTIONS (1)
  - VITH NERVE PARALYSIS [None]
